FAERS Safety Report 24085407 (Version 2)
Quarter: 2024Q3

REPORT INFORMATION
  Report Type: Spontaneous
  Country: JP (occurrence: JP)
  Receive Date: 20240712
  Receipt Date: 20240801
  Transmission Date: 20241016
  Serious: Yes (Disabling)
  Sender: BAYER
  Company Number: JP-BAYER-2024A099672

PATIENT
  Age: 82 Year
  Sex: Male

DRUGS (9)
  1. KERENDIA [Suspect]
     Active Substance: FINERENONE
     Indication: Type 2 diabetes mellitus
     Dosage: 10MG
     Dates: start: 202310, end: 20240626
  2. KERENDIA [Suspect]
     Active Substance: FINERENONE
     Indication: Chronic kidney disease
  3. IRBESARTAN [Suspect]
     Active Substance: IRBESARTAN
     Dosage: 100MG
  4. BEZAFIBRATE [Suspect]
     Active Substance: BEZAFIBRATE
     Indication: Hyperlipidaemia
     Dosage: 200MG
  5. EZETIMIBE [Suspect]
     Active Substance: EZETIMIBE
     Indication: Hyperlipidaemia
     Dosage: 10MG
  6. BISOPROLOL FUMARATE [Suspect]
     Active Substance: BISOPROLOL FUMARATE
     Dosage: 2.5MG
  7. LINAGLIPTIN [Suspect]
     Active Substance: LINAGLIPTIN
     Dosage: 5MG
  8. INDAPAMIDE [Suspect]
     Active Substance: INDAPAMIDE
     Dosage: 1MG
  9. MITIGLINIDE CALCIUM HYDRATE\VOGLIBOSE [Suspect]
     Active Substance: MITIGLINIDE CALCIUM HYDRATE\VOGLIBOSE
     Dosage: 1DF, TID

REACTIONS (2)
  - Blood creatinine increased [Not Recovered/Not Resolved]
  - Oedema peripheral [Recovering/Resolving]

NARRATIVE: CASE EVENT DATE: 20240426
